FAERS Safety Report 8369537-7 (Version None)
Quarter: 2012Q2

REPORT INFORMATION
  Report Type: 
  Country: None (occurrence: None)
  Receive Date: 20120518
  Receipt Date: 20120515
  Transmission Date: 20120825
  Serious: Yes (Life-Threatening, Hospitalization, Other)
  Sender: FDA-Public Use
  Company Number: CN-JNJFOC-20110204369

PATIENT
  Sex: Female

DRUGS (5)
  1. RISPERIDONE [Suspect]
     Route: 048
  2. RISPERDAL CONSTA [Suspect]
     Route: 030
     Dates: start: 20101101, end: 20110101
  3. RISPERIDONE [Suspect]
     Dosage: 2~3ML/D
     Route: 048
  4. RISPERDAL CONSTA [Suspect]
     Indication: SCHIZOPHRENIA
     Route: 030
     Dates: start: 20101118, end: 20101218
  5. RISPERIDONE [Suspect]
     Indication: SCHIZOPHRENIA
     Route: 048
     Dates: start: 20101118, end: 20110218

REACTIONS (3)
  - ATRIAL FIBRILLATION [None]
  - VENTRICULAR TACHYCARDIA [None]
  - ARRHYTHMIA [None]
